FAERS Safety Report 8775065 (Version 1)
Quarter: 2012Q4

REPORT INFORMATION
  Report Type: 
  Country: US (occurrence: US)
  Receive Date: 20120912
  Receipt Date: 20120912
  Transmission Date: 20130627
  Serious: Yes (Other)
  Sender: FDA-Public Use
  Company Number: US-SANOFI-AVENTIS-2012SA063194

PATIENT
  Age: 58 Year
  Sex: Male
  Weight: 143 kg

DRUGS (1)
  1. LASIX [Suspect]
     Indication: CONGESTIVE HEART FAILURE
     Route: 048
     Dates: start: 2011, end: 2012

REACTIONS (3)
  - Fluid overload [Unknown]
  - Coma [Unknown]
  - Gout [Unknown]
